FAERS Safety Report 9320982 (Version 1)
Quarter: 2013Q2

REPORT INFORMATION
  Report Type: Spontaneous
  Country: US (occurrence: US)
  Receive Date: 20130531
  Receipt Date: 20130531
  Transmission Date: 20140414
  Serious: No
  Sender: FDA-Public Use
  Company Number: US-PFIZER INC-2013163521

PATIENT
  Age: 72 Year
  Sex: Female
  Weight: 77.1 kg

DRUGS (1)
  1. ARTHROTEC [Suspect]
     Indication: PAIN
     Dosage: 50/200 MG/MCG, 2X/DAY
     Route: 048
     Dates: end: 20130525

REACTIONS (2)
  - Fall [Unknown]
  - Joint injury [Unknown]
